FAERS Safety Report 4939430-8 (Version None)
Quarter: 2006Q1

REPORT INFORMATION
  Report Type: 
  Country: None (occurrence: None)
  Receive Date: 20060310
  Receipt Date: 20060227
  Transmission Date: 20060701
  Serious: Yes (Hospitalization, Other)
  Sender: FDA-Public Use
  Company Number: US-BRISTOL-MYERS SQUIBB COMPANY-13297247

PATIENT
  Age: 48 Hour

DRUGS (5)
  1. ABILIFY [Suspect]
     Route: 050
  2. TOPAMAX [Suspect]
     Route: 050
  3. LEXAPRO [Suspect]
     Route: 050
  4. REMERON [Suspect]
     Route: 050
  5. ZYPREXA [Suspect]
     Route: 050

REACTIONS (3)
  - DRUG EXPOSURE VIA BREAST MILK [None]
  - FEEDING DISORDER NEONATAL [None]
  - SEDATION [None]
